FAERS Safety Report 21419111 (Version 1)
Quarter: 2022Q4

REPORT INFORMATION
  Report Type: Spontaneous
  Country: US (occurrence: None)
  Receive Date: 20221006
  Receipt Date: 20221006
  Transmission Date: 20230113
  Serious: Yes (unspecified)
  Sender: FDA-Public Use
  Company Number: None

PATIENT
  Sex: Female

DRUGS (1)
  1. IRON SUCROSE [Suspect]
     Active Substance: IRON SUCROSE
     Indication: Iron deficiency anaemia
     Dates: start: 20221006, end: 20221006

REACTIONS (6)
  - Infusion related reaction [None]
  - Erythema [None]
  - Joint swelling [None]
  - Swelling [None]
  - Paraesthesia [None]
  - Limb discomfort [None]

NARRATIVE: CASE EVENT DATE: 20221006
